FAERS Safety Report 7960528-4 (Version None)
Quarter: 2011Q4

REPORT INFORMATION
  Report Type: 
  Country: None (occurrence: None)
  Receive Date: 20111206
  Receipt Date: 20111201
  Transmission Date: 20120403
  Serious: Yes (Death, Hospitalization)
  Sender: FDA-Public Use
  Company Number: US-GILEAD-2011-0046997

PATIENT
  Sex: Female

DRUGS (3)
  1. LETAIRIS [Suspect]
     Indication: AORTIC STENOSIS
     Dosage: 5 MG, UNK
     Route: 048
     Dates: start: 20110706
  2. LETAIRIS [Suspect]
     Indication: PULMONARY HYPERTENSION
     Dosage: 10 MG, UNK
     Route: 048
     Dates: start: 20110722, end: 20111115
  3. ADCIRCA [Concomitant]

REACTIONS (8)
  - RENAL FAILURE [None]
  - FALL [None]
  - CARBON DIOXIDE INCREASED [None]
  - GASTROINTESTINAL HAEMORRHAGE [None]
  - CLOSTRIDIAL INFECTION [None]
  - RESPIRATORY FAILURE [None]
  - RESPIRATORY ARREST [None]
  - DISEASE PROGRESSION [None]
